FAERS Safety Report 17127534 (Version 1)
Quarter: 2019Q4

REPORT INFORMATION
  Report Type: Spontaneous
  Country: US (occurrence: US)
  Receive Date: 20191209
  Receipt Date: 20191209
  Transmission Date: 20200122
  Serious: Yes (Hospitalization, Other)
  Sender: FDA-Public Use
  Company Number: US-AUROBINDO-AUR-APL-2019-076020

PATIENT
  Age: 76 Year
  Sex: Male

DRUGS (4)
  1. SERTRALINE [Suspect]
     Active Substance: SERTRALINE HYDROCHLORIDE
     Indication: MAJOR DEPRESSION
     Dosage: TAPERED THE DOSE
     Route: 065
  2. SUCCINYLCHOLINE [Concomitant]
     Active Substance: SUCCINYLCHOLINE
     Dosage: 1.7 MILLIGRAM/KILOGRAM
     Route: 065
  3. SUCCINYLCHOLINE [Concomitant]
     Active Substance: SUCCINYLCHOLINE
     Dosage: 1.25 MILLIGRAM/KILOGRAM
     Route: 065
  4. SUCCINYLCHOLINE [Concomitant]
     Active Substance: SUCCINYLCHOLINE
     Indication: PARALYSIS
     Dosage: 1 MILLIGRAM/KILOGRAM
     Route: 065

REACTIONS (15)
  - Anhedonia [Recovered/Resolved]
  - Thinking abnormal [Recovered/Resolved]
  - Sexual dysfunction [Recovered/Resolved]
  - Insomnia [Recovered/Resolved]
  - Condition aggravated [Recovered/Resolved]
  - Intentional product use issue [Recovered/Resolved]
  - Ill-defined disorder [Recovered/Resolved]
  - Speech disorder [Recovered/Resolved]
  - Depression [Recovered/Resolved]
  - Helplessness [Recovered/Resolved]
  - Suicidal ideation [Recovered/Resolved]
  - Asthenia [Recovered/Resolved]
  - Psychomotor retardation [Recovered/Resolved]
  - Feeling guilty [Recovered/Resolved]
  - Decreased appetite [Recovered/Resolved]
